FAERS Safety Report 13417281 (Version 1)
Quarter: 2017Q2

REPORT INFORMATION
  Report Type: Spontaneous
  Country: SE (occurrence: SE)
  Receive Date: 20170407
  Receipt Date: 20170407
  Transmission Date: 20170830
  Serious: Yes (Other)
  Sender: FDA-Public Use
  Company Number: SE-ELI_LILLY_AND_COMPANY-SE201704001293

PATIENT
  Age: 28 Year
  Sex: Male

DRUGS (8)
  1. STRATTERA [Suspect]
     Active Substance: ATOMOXETINE HYDROCHLORIDE
     Dosage: 36 MG, QD
     Route: 048
  2. PARAFLEX [Concomitant]
     Active Substance: CHLORZOXAZONE
     Indication: PRODUCT USED FOR UNKNOWN INDICATION
     Dosage: 250 MG, PRN
     Route: 065
  3. INDERAL [Concomitant]
     Active Substance: PROPRANOLOL HYDROCHLORIDE
     Indication: PRODUCT USED FOR UNKNOWN INDICATION
     Dosage: 10 MG, UNKNOWN
     Route: 065
  4. STRATTERA [Suspect]
     Active Substance: ATOMOXETINE HYDROCHLORIDE
     Dosage: 72 MG, UNK
  5. DIKLOFENAK ORIFARM [Concomitant]
     Indication: PRODUCT USED FOR UNKNOWN INDICATION
     Dosage: 50 MG, PRN
     Route: 065
  6. VENLAFAXINE BLUEFISH [Concomitant]
     Active Substance: VENLAFAXINE HYDROCHLORIDE
     Indication: PRODUCT USED FOR UNKNOWN INDICATION
     Dosage: UNK UNK, UNKNOWN
     Route: 065
     Dates: start: 20160421
  7. VENLAFAXINE BLUEFISH [Concomitant]
     Active Substance: VENLAFAXINE HYDROCHLORIDE
     Dosage: UNK
     Dates: start: 20160809
  8. STRATTERA [Suspect]
     Active Substance: ATOMOXETINE HYDROCHLORIDE
     Indication: ATTENTION DEFICIT/HYPERACTIVITY DISORDER
     Dosage: 18 MG, QD
     Route: 048
     Dates: start: 20160809, end: 201611

REACTIONS (5)
  - Drug ineffective [Recovered/Resolved]
  - Bladder disorder [Recovered/Resolved]
  - Headache [Recovered/Resolved]
  - Hyperhidrosis [Recovered/Resolved]
  - Ejaculation disorder [Recovered/Resolved]

NARRATIVE: CASE EVENT DATE: 2016
